FAERS Safety Report 4458085-2 (Version None)
Quarter: 2004Q3

REPORT INFORMATION
  Report Type: 
  Country: None (occurrence: None)
  Receive Date: 20040923
  Receipt Date: 20040809
  Transmission Date: 20050211
  Serious: Yes (Hospitalization)
  Sender: FDA-Public Use
  Company Number: 20040800363

PATIENT
  Age: 13 Year
  Sex: Female
  Weight: 45 kg

DRUGS (6)
  1. CHLORPROMAZINE [Suspect]
     Dates: start: 20040101
  2. ETOPOSIDE [Suspect]
     Dosage: 135 MG DAILY IV
     Route: 042
     Dates: start: 20040527
  3. CISPLATIN [Suspect]
     Dosage: 27 MG DAILY IV
     Route: 042
     Dates: start: 20040527
  4. BLEOMYCIN [Suspect]
     Dosage: 30 MG DAILY IV
     Route: 042
     Dates: start: 20040527, end: 20040528
  5. METHYLPREDNISOLONE [Concomitant]
  6. ONDANSETRON HCL [Concomitant]

REACTIONS (3)
  - DISTURBANCE IN ATTENTION [None]
  - HYPONATRAEMIA [None]
  - INCOHERENT [None]
